FAERS Safety Report 9512024 (Version 1)
Quarter: 2013Q3

REPORT INFORMATION
  Report Type: Spontaneous
  Country: CH (occurrence: CH)
  Receive Date: 20130910
  Receipt Date: 20130910
  Transmission Date: 20140515
  Serious: Yes (Other)
  Sender: FDA-Public Use
  Company Number: PHHY2013CH098824

PATIENT
  Age: 18 Year
  Sex: Male

DRUGS (2)
  1. RITALIN [Suspect]
     Indication: ATTENTION DEFICIT/HYPERACTIVITY DISORDER
     Dosage: 5 DF, DAILY
  2. AERIUS [Concomitant]
     Indication: SEASONAL ALLERGY
     Dosage: 5 MG, OCCASIONALLY

REACTIONS (1)
  - Hypertension [Recovered/Resolved]
